FAERS Safety Report 7622700-2 (Version None)
Quarter: 2011Q3

REPORT INFORMATION
  Report Type: 
  Country: None (occurrence: None)
  Receive Date: 20110712
  Receipt Date: 20110627
  Transmission Date: 20111222
  Serious: Yes (Other)
  Sender: FDA-Public Use
  Company Number: 2011MA008122

PATIENT
  Age: 37 Year
  Sex: Male

DRUGS (13)
  1. CARBAMAZEPINE [Suspect]
     Indication: DEPRESSION
  2. QUETIAPINE FUMARATE [Suspect]
     Indication: DEPRESSION
  3. FLUNITRAZEPAM (FLUNITRAZEPAM) [Suspect]
     Indication: DEPRESSION
  4. LOXOPROFEN SODIUM (LOXOPROFEN SODIUM [Suspect]
     Indication: OROPHARYNGEAL PAIN
  5. CIPROFLOXACIN [Suspect]
     Indication: OROPHARYNGEAL PAIN
  6. LEVOPROME [Suspect]
     Indication: DEPRESSION
  7. BIPERIDEN HYDROCHLORIDE TAB [Suspect]
     Indication: DEPRESSION
  8. MIGRENIN (MIGRENIN) [Suspect]
  9. DIMEMORPFAN PHOSPHATE [Suspect]
     Indication: OROPHARYNGEAL PAIN
  10. RISPERIDONE [Suspect]
     Indication: DEPRESSION
  11. SERRAPEPTASE (SERRAPEPTASE) [Suspect]
     Indication: OROPHARYNGEAL PAIN
  12. ACETAMINOPHEN [Suspect]
     Indication: OROPHARYNGEAL PAIN
  13. DICLOFENAC SODIUM [Suspect]
     Indication: OROPHARYNGEAL PAIN

REACTIONS (10)
  - ASPARTATE AMINOTRANSFERASE INCREASED [None]
  - BLOOD LACTATE DEHYDROGENASE INCREASED [None]
  - C-REACTIVE PROTEIN INCREASED [None]
  - ROSEOLOVIRUS TEST POSITIVE [None]
  - LYMPHOCYTE STIMULATION TEST POSITIVE [None]
  - LEUKOCYTOSIS [None]
  - ALANINE AMINOTRANSFERASE INCREASED [None]
  - TOXIC EPIDERMAL NECROLYSIS [None]
  - HEPATIC FUNCTION ABNORMAL [None]
  - GAMMA-GLUTAMYLTRANSFERASE INCREASED [None]
